FAERS Safety Report 25416308 (Version 1)
Quarter: 2025Q2

REPORT INFORMATION
  Report Type: Report from Study
  Country: US (occurrence: US)
  Receive Date: 20250610
  Receipt Date: 20250610
  Transmission Date: 20250717
  Serious: Yes (Hospitalization, Other)
  Sender: ABBVIE
  Company Number: US-ABBVIE-6050356

PATIENT
  Age: 77 Year
  Sex: Male
  Weight: 76.203 kg

DRUGS (6)
  1. VENCLEXTA [Suspect]
     Active Substance: VENETOCLAX
     Indication: Acute myeloid leukaemia
     Route: 048
     Dates: start: 202306
  2. QUERCETIN [Concomitant]
     Active Substance: QUERCETIN
     Indication: Product used for unknown indication
  3. VITAMIN D [Concomitant]
     Active Substance: VITAMIN D NOS
     Indication: Product used for unknown indication
  4. VALACYCLOVIR [Concomitant]
     Active Substance: VALACYCLOVIR HYDROCHLORIDE
     Indication: Product used for unknown indication
  5. VORICONAZOLE [Concomitant]
     Active Substance: VORICONAZOLE
     Indication: Product used for unknown indication
  6. VITAMIN C [Concomitant]
     Active Substance: ASCORBIC ACID
     Indication: Product used for unknown indication

REACTIONS (15)
  - COVID-19 [Recovered/Resolved]
  - Hypogeusia [Unknown]
  - Amnesia [Unknown]
  - Thrombosis [Recovering/Resolving]
  - Arthralgia [Unknown]
  - Fall [Recovered/Resolved]
  - Nocturia [Not Recovered/Not Resolved]
  - Foot fracture [Recovered/Resolved]
  - Platelet count decreased [Unknown]
  - White blood cell count decreased [Unknown]
  - Panic attack [Unknown]
  - Joint injury [Not Recovered/Not Resolved]
  - Actinic keratosis [Unknown]
  - Skin lesion [Unknown]
  - Arthropod bite [Unknown]

NARRATIVE: CASE EVENT DATE: 20240101
